FAERS Safety Report 4722512-3 (Version None)
Quarter: 2005Q3

REPORT INFORMATION
  Report Type: 
  Country: None (occurrence: None)
  Receive Date: 20050722
  Receipt Date: 20050524
  Transmission Date: 20060218
  Serious: No
  Sender: FDA-Public Use
  Company Number: US-GLAXOSMITHKLINE-A0559912A

PATIENT
  Age: 81 Year
  Sex: Male

DRUGS (4)
  1. AVANDIA [Suspect]
     Dosage: 8MG PER DAY
     Route: 048
     Dates: start: 20040601, end: 20050520
  2. INSULIN [Concomitant]
  3. BETA BLOCKER [Concomitant]
  4. DIGOXIN [Concomitant]

REACTIONS (6)
  - DYSSTASIA [None]
  - FATIGUE [None]
  - HAEMATOCRIT DECREASED [None]
  - HAEMOGLOBIN DECREASED [None]
  - MEAN CELL VOLUME DECREASED [None]
  - OEDEMA PERIPHERAL [None]
